FAERS Safety Report 19988853 (Version 4)
Quarter: 2025Q4

REPORT INFORMATION
  Report Type: Report from Study
  Country: RU (occurrence: RU)
  Receive Date: 20211024
  Receipt Date: 20251215
  Transmission Date: 20260118
  Serious: Yes (Hospitalization, Other)
  Sender: NOVARTIS
  Company Number: RU-NOVARTISPH-NVSC2021RU221017

PATIENT
  Age: 1 Year
  Sex: Male

DRUGS (84)
  1. ZOLGENSMA [Suspect]
     Active Substance: ONASEMNOGENE ABEPARVOVEC-XIOI
     Indication: Spinal muscular atrophy
     Dosage: 38.5 ML, ONCE/SINGLE (1.1?10X14 VG/KG) (AT 01:54-02:54 PM)
     Route: 042
     Dates: start: 20210921
  2. VITAMIN D [Concomitant]
     Active Substance: VITAMIN D NOS
     Indication: Product used for unknown indication
     Dosage: 1500 IU, QD
     Route: 065
  3. CALCIUM [Concomitant]
     Active Substance: CALCIUM
     Indication: Product used for unknown indication
     Dosage: 200 MG, QD
     Route: 065
  4. CALCIUM [Concomitant]
     Active Substance: CALCIUM
     Dosage: 200 MG, QD
     Route: 065
  5. CALCIUM [Concomitant]
     Active Substance: CALCIUM
     Dosage: 200 MG, QD (CONTINUOUSLY UNTIL PREDNISOLONE DISCONTINUATION, THEN: 2-MONTH CYCLE, 2-MONTH BREAK)
     Route: 065
  6. IBUPROFEN [Concomitant]
     Active Substance: IBUPROFEN
     Indication: Product used for unknown indication
     Dosage: 100 MG/5 ML
     Route: 065
     Dates: start: 20210924
  7. IBUPROFEN [Concomitant]
     Active Substance: IBUPROFEN
     Dosage: 100 MG/5 ML
     Route: 065
     Dates: start: 20210925
  8. IBUPROFEN [Concomitant]
     Active Substance: IBUPROFEN
     Dosage: 100 MG/5 ML
     Route: 065
     Dates: start: 20211004
  9. IBUPROFEN [Concomitant]
     Active Substance: IBUPROFEN
     Dosage: 100 MG/5 ML
     Route: 065
     Dates: start: 20211005
  10. IBUPROFEN [Concomitant]
     Active Substance: IBUPROFEN
     Dosage: 100 MG/5 ML
     Route: 065
     Dates: start: 20211006
  11. IBUPROFEN [Concomitant]
     Active Substance: IBUPROFEN
     Dosage: 100 MG/5 ML
     Route: 065
     Dates: start: 20211007
  12. IBUPROFEN [Concomitant]
     Active Substance: IBUPROFEN
     Dosage: 50 MG, TID
     Route: 065
  13. IBUPROFEN [Concomitant]
     Active Substance: IBUPROFEN
     Dosage: UNK, PRN (AS NEEDED)
     Route: 065
     Dates: start: 20211014
  14. ACETAMINOPHEN [Concomitant]
     Active Substance: ACETAMINOPHEN
     Indication: Product used for unknown indication
     Dosage: UNK
     Route: 065
     Dates: start: 20210902
  15. ACETAMINOPHEN [Concomitant]
     Active Substance: ACETAMINOPHEN
     Dosage: UNK
     Route: 065
     Dates: start: 20210924
  16. ACETAMINOPHEN [Concomitant]
     Active Substance: ACETAMINOPHEN
     Dosage: UNK
     Route: 065
     Dates: start: 20211006
  17. ACETAMINOPHEN [Concomitant]
     Active Substance: ACETAMINOPHEN
     Dosage: 9 ML PLUS 6 ML OF 0.9 PERCENT NACL IV FOR 30 MIN
     Route: 065
     Dates: start: 20211007
  18. ACETAMINOPHEN [Concomitant]
     Active Substance: ACETAMINOPHEN
     Dosage: 7 ML, TID
     Route: 042
     Dates: start: 20211007
  19. ACETAMINOPHEN [Concomitant]
     Active Substance: ACETAMINOPHEN
     Dosage: 5 ML, TID
     Route: 042
     Dates: start: 20211008, end: 20211013
  20. ACETAMINOPHEN [Concomitant]
     Active Substance: ACETAMINOPHEN
     Dosage: 10 ML
     Route: 042
     Dates: start: 20211017
  21. Analgin [Concomitant]
     Indication: Product used for unknown indication
     Dosage: 0.2 ML
     Route: 042
     Dates: start: 20210913
  22. Analgin [Concomitant]
     Dosage: 0.1 ML
     Route: 030
     Dates: start: 20211006
  23. Analgin [Concomitant]
     Dosage: 0.2 ML
     Route: 065
     Dates: start: 20211007
  24. DROTAVERINE [Concomitant]
     Active Substance: DROTAVERINE
     Indication: Product used for unknown indication
     Dosage: 0.2 ML
     Route: 042
     Dates: start: 20210913
  25. DROTAVERINE [Concomitant]
     Active Substance: DROTAVERINE
     Dosage: 0.1 ML
     Route: 030
     Dates: start: 20211006
  26. DROTAVERINE [Concomitant]
     Active Substance: DROTAVERINE
     Dosage: 0.5 ML
     Route: 065
     Dates: start: 20211007
  27. DROTAVERINE [Concomitant]
     Active Substance: DROTAVERINE
     Dosage: 0.5 ML, TID
     Route: 042
     Dates: start: 20211008, end: 20211012
  28. DROTAVERINE [Concomitant]
     Active Substance: DROTAVERINE
     Dosage: 0.5 ML, TID
     Route: 042
     Dates: start: 20211017
  29. CHLOROPYRAMINE [Concomitant]
     Active Substance: CHLOROPYRAMINE
     Indication: Product used for unknown indication
     Dosage: 0.2 ML
     Route: 042
     Dates: start: 20210913
  30. CHLOROPYRAMINE [Concomitant]
     Active Substance: CHLOROPYRAMINE
     Dosage: 0.3 ML
     Route: 030
     Dates: start: 20211006
  31. CHLOROPYRAMINE [Concomitant]
     Active Substance: CHLOROPYRAMINE
     Dosage: 0.3 ML, TID
     Route: 042
     Dates: start: 20211007, end: 20211012
  32. CHLOROPYRAMINE [Concomitant]
     Active Substance: CHLOROPYRAMINE
     Dosage: 0.3 ML, TID
     Route: 042
     Dates: start: 20211017
  33. DIPHENHYDRAMINE [Concomitant]
     Active Substance: DIPHENHYDRAMINE
     Indication: Product used for unknown indication
     Dosage: 0.1 ML
     Route: 030
     Dates: start: 20211006
  34. METOCLOPRAMIDE [Concomitant]
     Active Substance: METOCLOPRAMIDE
     Indication: Product used for unknown indication
     Dosage: 0.15 MG/KG, ONCE/SINGLE
     Route: 042
     Dates: start: 20210913
  35. METOCLOPRAMIDE [Concomitant]
     Active Substance: METOCLOPRAMIDE
     Dosage: 0.2 ML
     Route: 065
     Dates: start: 20211007
  36. MOTILIUM [Concomitant]
     Active Substance: DOMPERIDONE
     Indication: Product used for unknown indication
     Dosage: 2 ML, BID
     Route: 065
     Dates: start: 20210916
  37. MOTILIUM [Concomitant]
     Active Substance: DOMPERIDONE
     Dosage: 3.5 MG, TID
     Route: 065
     Dates: start: 20211014
  38. MOTILIUM [Concomitant]
     Active Substance: DOMPERIDONE
     Dosage: 3.5 MG
     Route: 065
  39. POLYETHYLENE GLYCOLS [Concomitant]
     Active Substance: POLYETHYLENE GLYCOLS
     Indication: Product used for unknown indication
     Dosage: 2 G, BID
     Route: 065
     Dates: start: 20210916
  40. POLYETHYLENE GLYCOLS [Concomitant]
     Active Substance: POLYETHYLENE GLYCOLS
     Dosage: 1 G, BID
     Route: 065
     Dates: start: 20210923
  41. PREDNISOLONE [Concomitant]
     Active Substance: PREDNISOLONE
     Indication: Product used for unknown indication
     Dosage: 7 MG
     Route: 048
     Dates: start: 20210920
  42. PREDNISOLONE [Concomitant]
     Active Substance: PREDNISOLONE
     Dosage: 1 MG/KG, QD
     Route: 065
  43. PREDNISOLONE [Concomitant]
     Active Substance: PREDNISOLONE
     Dosage: 7 MG (10 ML OF 0.9 PERCENT NACL)
     Route: 042
     Dates: start: 20211004
  44. PREDNISOLONE [Concomitant]
     Active Substance: PREDNISOLONE
     Dosage: 7 MG, BID (2 MG/KG/DAY)
     Route: 042
     Dates: start: 20211006
  45. PREDNISOLONE [Concomitant]
     Active Substance: PREDNISOLONE
     Dosage: 4 MG
     Route: 030
     Dates: start: 20211007
  46. PREDNISOLONE [Concomitant]
     Active Substance: PREDNISOLONE
     Dosage: 7 MG, BID
     Route: 042
     Dates: end: 20211010
  47. PREDNISOLONE [Concomitant]
     Active Substance: PREDNISOLONE
     Dosage: 3.5 MG, BID
     Route: 042
     Dates: start: 20211010, end: 20211025
  48. PREDNISOLONE [Concomitant]
     Active Substance: PREDNISOLONE
     Dosage: 3.5 MG, BID
     Route: 048
     Dates: start: 20211026
  49. OMEPRAZOLE [Concomitant]
     Active Substance: OMEPRAZOLE
     Indication: Product used for unknown indication
     Dosage: 10 MG, QD (IN THE MORNING 30-60 MINUTES BEFORE MEALS)
     Route: 065
     Dates: start: 20210920
  50. OMEPRAZOLE [Concomitant]
     Active Substance: OMEPRAZOLE
     Dosage: 10 MG, QD
     Route: 065
  51. OMEPRAZOLE [Concomitant]
     Active Substance: OMEPRAZOLE
     Dosage: 10 MG, QD
     Route: 065
  52. FUROSEMIDE [Concomitant]
     Active Substance: FUROSEMIDE
     Indication: Product used for unknown indication
     Dosage: 0.2 ML, ONCE/SINGLE
     Route: 042
     Dates: start: 20211005
  53. FUROSEMIDE [Concomitant]
     Active Substance: FUROSEMIDE
     Dosage: 0.5 ML
     Route: 065
     Dates: start: 20211008
  54. FUROSEMIDE [Concomitant]
     Active Substance: FUROSEMIDE
     Dosage: 0.4 ML
     Route: 065
     Dates: start: 20211014
  55. FUROSEMIDE [Concomitant]
     Active Substance: FUROSEMIDE
     Dosage: 0.2 ML
     Route: 065
     Dates: start: 20211015
  56. FUROSEMIDE [Concomitant]
     Active Substance: FUROSEMIDE
     Dosage: 0.2 ML, BID
     Route: 065
     Dates: start: 20211016, end: 20211017
  57. FENOTEROL HYDROBROMIDE\IPRATROPIUM BROMIDE [Concomitant]
     Active Substance: FENOTEROL HYDROBROMIDE\IPRATROPIUM BROMIDE
     Indication: Product used for unknown indication
     Dosage: 7 DRP, TID (UNTIL THE TRANSFER)
     Route: 055
     Dates: start: 20211006
  58. SIBAZON [Concomitant]
     Indication: Product used for unknown indication
     Dosage: 0.5 % (10.0)
     Route: 065
     Dates: start: 20211009, end: 20211010
  59. PROPOFOL [Concomitant]
     Active Substance: PROPOFOL
     Indication: Product used for unknown indication
     Dosage: 1 %
     Route: 065
     Dates: start: 20211009, end: 20211010
  60. BUDESONIDE [Concomitant]
     Active Substance: BUDESONIDE
     Indication: Product used for unknown indication
     Dosage: 250 UG, BID
     Route: 055
     Dates: end: 20211010
  61. MEROPENEM [Concomitant]
     Active Substance: MEROPENEM
     Indication: Product used for unknown indication
     Dosage: 112 MG, QD
     Route: 042
     Dates: start: 20211018, end: 20211025
  62. OXYFRIN [Concomitant]
     Indication: Product used for unknown indication
     Dosage: 1 DRP, TID
     Route: 065
     Dates: start: 20211007, end: 20211011
  63. GRIPPFERON [Concomitant]
     Indication: Product used for unknown indication
     Dosage: 1 DRP (7 TIMES A DAY)
     Route: 065
     Dates: start: 20211011, end: 20211013
  64. INTERFERON ALFA-2B [Concomitant]
     Active Substance: INTERFERON ALFA-2B
     Indication: Product used for unknown indication
     Dosage: 150,000 SUPP. BID
     Route: 065
     Dates: start: 20211007, end: 20211013
  65. INTERFERON ALFA-2B [Concomitant]
     Active Substance: INTERFERON ALFA-2B
     Dosage: 150,000 SUPP. BID
     Route: 065
     Dates: start: 20211021, end: 20211026
  66. PREDNISONE [Concomitant]
     Active Substance: PREDNISONE
     Indication: Product used for unknown indication
     Dosage: 2 MG/KG, QD
     Route: 065
  67. PREDNISONE [Concomitant]
     Active Substance: PREDNISONE
     Dosage: 1 MG/KG, QD
     Route: 048
     Dates: start: 20210920, end: 20211004
  68. PREDNISONE [Concomitant]
     Active Substance: PREDNISONE
     Dosage: 1 MG/KG, QD
     Route: 042
     Dates: start: 20211004, end: 20211006
  69. PREDNISONE [Concomitant]
     Active Substance: PREDNISONE
     Dosage: 2 MG/KG, QD
     Route: 042
     Dates: start: 20211006, end: 20211010
  70. PREDNISONE [Concomitant]
     Active Substance: PREDNISONE
     Dosage: 1 MG/KG, QD
     Route: 042
     Dates: start: 20211010, end: 20211025
  71. PREDNISONE [Concomitant]
     Active Substance: PREDNISONE
     Dosage: 1 MG/KG, QD
     Route: 042
     Dates: start: 20211025
  72. LACTULOSE [Concomitant]
     Active Substance: LACTULOSE
     Indication: Product used for unknown indication
     Dosage: 5 ML, BID
     Route: 065
     Dates: start: 20211013
  73. ENEMA (SODIUM PHOSPHATE, DIBASIC\SODIUM PHOSPHATE, MONOBASIC) [Concomitant]
     Active Substance: SODIUM PHOSPHATE, DIBASIC\SODIUM PHOSPHATE, MONOBASIC
     Indication: Faecaloma
     Dosage: UNK (SUPPOSITORY)
     Route: 065
  74. GLYCERIN [Concomitant]
     Active Substance: GLYCERIN
     Indication: Faecaloma
     Dosage: UNK (SUPPOSITORY)
     Route: 065
  75. OFTALMOFERON [Concomitant]
     Indication: Product used for unknown indication
     Dosage: 1 DRP, QID
     Route: 065
  76. OFLOXACIN [Concomitant]
     Active Substance: OFLOXACIN
     Indication: Product used for unknown indication
     Dosage: 1 DRP, TID
     Route: 065
  77. LACTOBACILLUS REUTERI [Concomitant]
     Active Substance: LACTOBACILLUS REUTERI
     Indication: Product used for unknown indication
     Dosage: UNK
     Route: 065
  78. BIFIDOBACTERIUM LONGUM [Concomitant]
     Active Substance: BIFIDOBACTERIUM LONGUM
     Indication: Product used for unknown indication
     Dosage: UNK
     Route: 065
  79. LACTOBACILLUS ACIDOPHILUS [Concomitant]
     Active Substance: LACTOBACILLUS ACIDOPHILUS
     Indication: Product used for unknown indication
     Dosage: UNK
     Route: 065
  80. ACETYLCARNITINE [Concomitant]
     Active Substance: ACETYLCARNITINE
     Indication: Product used for unknown indication
     Dosage: 30 MG/KG, QD
     Route: 065
  81. RIBOFLAVIN [Concomitant]
     Active Substance: RIBOFLAVIN
     Indication: Product used for unknown indication
     Dosage: 25 MG, QD (REPEAT COURSE IN 3-4 MONTHS)
     Route: 065
  82. Corset [Concomitant]
     Indication: Product used for unknown indication
     Dosage: UNK
     Route: 065
  83. SALINE [Concomitant]
     Active Substance: SODIUM CHLORIDE
     Indication: Product used for unknown indication
     Dosage: 2.0 ML, BID
     Route: 055
  84. Ophthalmoferon [Concomitant]
     Indication: Product used for unknown indication
     Dosage: 1 DRP, QID
     Route: 065

REACTIONS (37)
  - Bronchiolitis [Unknown]
  - PO2 decreased [Unknown]
  - Oxygen saturation decreased [Unknown]
  - Dyspnoea [Unknown]
  - Tachypnoea [Unknown]
  - Tachycardia [Unknown]
  - Rales [Unknown]
  - Crepitations [Unknown]
  - Sputum increased [Recovering/Resolving]
  - Bronchospasm [Unknown]
  - Pyrexia [Recovered/Resolved]
  - Lethargy [Unknown]
  - Hyperthermia [Recovered/Resolved]
  - Pseudomonas infection [Unknown]
  - Citrobacter infection [Unknown]
  - Alpha haemolytic streptococcal infection [Unknown]
  - Pneumonia [Unknown]
  - Blood lactate dehydrogenase increased [Recovering/Resolving]
  - Blood creatine phosphokinase increased [Recovered/Resolved]
  - Blood creatine phosphokinase MB increased [Recovering/Resolving]
  - C-reactive protein increased [Recovered/Resolved]
  - Prothrombin time shortened [Not Recovered/Not Resolved]
  - Platelet count decreased [Recovered/Resolved]
  - Pyrexia [Recovered/Resolved]
  - Aspartate aminotransferase increased [Recovered/Resolved]
  - Alanine aminotransferase increased [Recovered/Resolved]
  - White blood cell count decreased [Unknown]
  - Drug ineffective [Unknown]
  - Diarrhoea [Unknown]
  - Respiratory syncytial virus infection [Unknown]
  - Candida infection [Unknown]
  - Staphylococcal infection [Unknown]
  - Neutrophil count increased [Recovered/Resolved]
  - Monocyte count increased [Unknown]
  - Lymphocyte count increased [Unknown]
  - Activated partial thromboplastin time prolonged [Unknown]
  - Monocyte count decreased [Unknown]

NARRATIVE: CASE EVENT DATE: 20210924
